FAERS Safety Report 6239301-3 (Version None)
Quarter: 2009Q2

REPORT INFORMATION
  Report Type: 
  Country: None (occurrence: None)
  Receive Date: 20090622
  Receipt Date: 20090608
  Transmission Date: 20091009
  Serious: Yes (Hospitalization)
  Sender: FDA-Public Use
  Company Number: PHHY2009PT22761

PATIENT
  Age: 49 Year
  Sex: Female

DRUGS (5)
  1. MAPROTILINE HYDROCHLORIDE [Suspect]
     Dosage: 6 TABLETS (450 MG)
  2. CLONAZEPAM [Suspect]
     Dosage: 16 TABLETS (8MG)
  3. DISULFIRAM [Suspect]
     Dosage: UNK
  4. DISULFIRAM [Suspect]
     Dosage: 60 TABLETS (15 G)
  5. ALCOHOL [Suspect]

REACTIONS (24)
  - C-REACTIVE PROTEIN INCREASED [None]
  - CARDIAC INDEX DECREASED [None]
  - CARDIOGENIC SHOCK [None]
  - EJECTION FRACTION DECREASED [None]
  - FATIGUE [None]
  - HEART RATE INCREASED [None]
  - HYPOTENSION [None]
  - HYPOXIA [None]
  - INSOMNIA [None]
  - INTENTIONAL OVERDOSE [None]
  - ISCHAEMIA [None]
  - LUNG DISORDER [None]
  - OXYGEN SATURATION DECREASED [None]
  - PNEUMONIA ASPIRATION [None]
  - POOR PERIPHERAL CIRCULATION [None]
  - PULMONARY OEDEMA [None]
  - RALES [None]
  - RESPIRATORY DISTRESS [None]
  - SEPSIS [None]
  - SEPTIC SHOCK [None]
  - SINUS TACHYCARDIA [None]
  - TACHYPNOEA [None]
  - VASCULAR RESISTANCE SYSTEMIC INCREASED [None]
  - VENTRICULAR HYPOKINESIA [None]
